FAERS Safety Report 6532043-6 (Version None)
Quarter: 2009Q4

REPORT INFORMATION
  Report Type: 
  Country: None (occurrence: None)
  Receive Date: 20091224
  Receipt Date: 20091117
  Transmission Date: 20100525
  Serious: Yes (Hospitalization)
  Sender: FDA-Public Use
  Company Number: 8055098

PATIENT
  Age: 16 Year
  Sex: Female

DRUGS (1)
  1. XYZAL [Suspect]
     Dosage: 5 MG

REACTIONS (1)
  - CONVULSION [None]
